FAERS Safety Report 7889030-5 (Version None)
Quarter: 2011Q4

REPORT INFORMATION
  Report Type: 
  Country: None (occurrence: None)
  Receive Date: 20111103
  Receipt Date: 20111024
  Transmission Date: 20120403
  Serious: Yes (Other)
  Sender: FDA-Public Use
  Company Number: JP-NAPPMUNDI-MAG-2011-0001535

PATIENT
  Age: 66 Year
  Sex: Male

DRUGS (9)
  1. OXYCODONE HCL [Suspect]
     Dosage: 20 MG, DAILY
     Route: 048
     Dates: start: 20110418, end: 20110422
  2. OXYCODONE HCL [Suspect]
     Dosage: 20 MG, DAILY
     Route: 048
     Dates: start: 20110425, end: 20110503
  3. OXYCODONE HCL [Suspect]
     Indication: CANCER PAIN
     Dosage: 50 MG, DAILY
     Route: 048
     Dates: start: 20110318, end: 20110407
  4. OXYCODONE HCL [Suspect]
     Dosage: 100 MG, DAILY
     Dates: start: 20110424, end: 20110428
  5. OXYCODONE HCL [Suspect]
     Indication: CANCER PAIN
     Dosage: 10 MG, DAILY
     Route: 048
     Dates: start: 20110318, end: 20110417
  6. OXYCODONE HCL [Suspect]
     Dosage: 60 MG, DAILY
     Route: 048
     Dates: start: 20110408, end: 20110411
  7. OXYCODONE HCL [Suspect]
     Dosage: 100 MG, DAILY
     Route: 048
  8. OXYCODONE HCL [Suspect]
     Dosage: 80 UNK, DAILY
     Dates: start: 20110429, end: 20110506
  9. OXYCODONE HCL [Suspect]
     Dosage: 80 MG, DAILY
     Route: 048
     Dates: start: 20110412, end: 20110417

REACTIONS (2)
  - DELIRIUM [None]
  - CONSTIPATION [None]
